FAERS Safety Report 26088295 (Version 1)
Quarter: 2025Q4

REPORT INFORMATION
  Report Type: Report from Study
  Country: CH (occurrence: CH)
  Receive Date: 20251125
  Receipt Date: 20251125
  Transmission Date: 20260118
  Serious: Yes (Death, Other)
  Sender: JOHNSON AND JOHNSON
  Company Number: CH-JNJFOC-20251161402

PATIENT

DRUGS (2)
  1. SIMPONI [Suspect]
     Active Substance: GOLIMUMAB
     Indication: Rheumatoid arthritis
     Route: 058
  2. METHOTREXATE [Concomitant]
     Active Substance: METHOTREXATE
     Indication: Rheumatoid arthritis

REACTIONS (9)
  - Metastatic neoplasm [Fatal]
  - Neoplasm malignant [Recovered/Resolved]
  - Benign neoplasm [Recovered/Resolved]
  - Cyst [Recovered/Resolved]
  - Polyp [Recovered/Resolved]
  - Renal disorder [Recovered/Resolved]
  - Urinary tract disorder [Recovered/Resolved]
  - Drug specific antibody [Unknown]
  - Drug ineffective [Unknown]
